FAERS Safety Report 10528541 (Version 1)
Quarter: 2014Q4

REPORT INFORMATION
  Report Type: Spontaneous
  Country: GR (occurrence: GR)
  Receive Date: 20141020
  Receipt Date: 20141020
  Transmission Date: 20150528
  Serious: Yes (Hospitalization)
  Sender: FDA-Public Use
  Company Number: GR-ASTRAZENECA-2014SE77179

PATIENT
  Age: 72 Year
  Sex: Male
  Weight: 52 kg

DRUGS (10)
  1. MORPHINE (NON AZ PRODUCT) [Suspect]
     Active Substance: MORPHINE
     Dosage: 3 MG IN 3 ML N/S 0.9%
     Route: 008
  2. DICLOFENAC [Concomitant]
     Active Substance: DICLOFENAC
     Indication: GENERAL ANAESTHESIA
     Route: 054
  3. ONDASETRON [Concomitant]
     Route: 048
  4. ROPIVACAINE [Suspect]
     Active Substance: ROPIVACAINE
     Indication: ANAESTHESIA
     Route: 008
  5. MORPHINE (NON AZ PRODUCT) [Suspect]
     Active Substance: MORPHINE
     Route: 030
  6. LIDOCAINE. [Suspect]
     Active Substance: LIDOCAINE
     Route: 008
  7. PROPOFOL. [Suspect]
     Active Substance: PROPOFOL
     Indication: ANAESTHESIA
     Route: 042
  8. SEVOFLURANE. [Suspect]
     Active Substance: SEVOFLURANE
     Indication: MAINTENANCE OF ANAESTHESIA
     Dosage: 1-1.5%
     Route: 065
  9. ROPIVACAINE [Suspect]
     Active Substance: ROPIVACAINE
     Indication: ANAESTHESIA
     Route: 008
  10. ROCURONIUM [Suspect]
     Active Substance: ROCURONIUM BROMIDE
     Indication: INDUCTION OF ANAESTHESIA
     Route: 008

REACTIONS (2)
  - Mean arterial pressure decreased [Unknown]
  - Paraparesis [Recovering/Resolving]
